FAERS Safety Report 18855972 (Version 1)
Quarter: 2021Q1

REPORT INFORMATION
  Report Type: Spontaneous
  Country: DE (occurrence: DE)
  Receive Date: 20210206
  Receipt Date: 20210206
  Transmission Date: 20210420
  Serious: Yes (Death, Life-Threatening)
  Sender: FDA-Public Use
  Company Number: DE-TEVA-2021-DE-1875977

PATIENT
  Age: 66 Year
  Sex: Female

DRUGS (1)
  1. DEXAMETHASONE. [Suspect]
     Active Substance: DEXAMETHASONE
     Dosage: 6 MG
     Dates: start: 20201204

REACTIONS (2)
  - Emphysema [Fatal]
  - Pneumomediastinum [Fatal]

NARRATIVE: CASE EVENT DATE: 20201207
